FAERS Safety Report 9012296 (Version 1)
Quarter: 2013Q1

REPORT INFORMATION
  Report Type: Report from Study
  Country: US (occurrence: US)
  Receive Date: 20130114
  Receipt Date: 20130114
  Transmission Date: 20140127
  Serious: Yes (Other)
  Sender: FDA-Public Use
  Company Number: US-ASTRAZENECA-2013SE01540

PATIENT
  Age: 37 Year
  Sex: Female

DRUGS (1)
  1. MERREM [Suspect]
     Route: 042

REACTIONS (1)
  - Grand mal convulsion [Unknown]
